FAERS Safety Report 7542250-1 (Version None)
Quarter: 2011Q2

REPORT INFORMATION
  Report Type: 
  Country: None (occurrence: None)
  Receive Date: 20110606
  Receipt Date: 20110524
  Transmission Date: 20111010
  Serious: Yes (Hospitalization)
  Sender: FDA-Public Use
  Company Number: 1000021240

PATIENT
  Age: 83 Year
  Sex: Female

DRUGS (16)
  1. HUMALOG [Suspect]
  2. MEMANTINE [Suspect]
     Dates: start: 20110220
  3. MODOPAR (LEVODOPA, BENSERAZIDE HYDROCHLORIDE) [Suspect]
     Dosage: 500 MG (125 MG, 4 IN 1 D), ORAL
     Route: 048
  4. LASILIX (FUROSEMIDE) (TABLETS) [Suspect]
     Dosage: 20 MG, ORAL
     Route: 048
     Dates: end: 20110316
  5. UVEDOSE (COLECACIFEROL) (COLESCACIFEROL) [Concomitant]
  6. MEMANTINE [Suspect]
     Dosage: 5 MG (10 MG, 1 IN 2 D)
     Dates: end: 20110406
  7. LANTUS (INSULIN GLARGINE) (INSULIN GLARGINE) [Concomitant]
  8. INIPOMP (PANTOPRAZOLE) (PANTOPRAZOLE) [Concomitant]
  9. TAHOR (ATORVASTATIN CALCIUM) (ATROVASTATIN CALCIUM) [Concomitant]
  10. IMOVANE (ZOPICLONE) [Suspect]
     Dosage: 1 DOSAGE FORM (1 DOSAGE FORMS, 1 IN 1 D), ORAL
     Route: 048
     Dates: end: 20110316
  11. IMOVANE (ZOPICLONE) [Suspect]
     Dosage: 1 DOSAGE FORM (1 DOSAGE FORMS, 1 IN 1 D), ORAL
     Route: 048
     Dates: start: 20110328
  12. OROCAL D3 (CALCIUM CARBONATE, COLECALCIFEROL) (CALCIUM CARBONATE, COLE [Concomitant]
  13. EXELON [Suspect]
     Dosage: 9.5 MG (9.5 MG, 1 IN 1 D), TRANSDERMAL; 9.5 MG (9.5 MG, 1 IN 1 D), TRANSDERMAL
     Route: 062
     Dates: end: 20110406
  14. EXELON [Suspect]
     Dosage: 9.5 MG (9.5 MG, 1 IN 1 D), TRANSDERMAL; 9.5 MG (9.5 MG, 1 IN 1 D), TRANSDERMAL
     Route: 062
     Dates: start: 20110410, end: 20110414
  15. DIFFU K (POTASSIUM CHLORIDE) [Suspect]
     Dosage: 1 DOSAGE FORM (1 IN 1 DOSAGE FORMS, 1 IN 1 D), ORAL
     Route: 048
     Dates: end: 20110325
  16. KARDEGIC (ACETYLSALICYLATE LYSINE) 9ACETYLSALICYLATE LYSINE) [Concomitant]

REACTIONS (10)
  - PANCREATITIS ACUTE [None]
  - ALANINE AMINOTRANSFERASE INCREASED [None]
  - CYTOLYTIC HEPATITIS [None]
  - ASPARTATE AMINOTRANSFERASE INCREASED [None]
  - DEHYDRATION [None]
  - SOMNOLENCE [None]
  - APHASIA [None]
  - RENAL FAILURE [None]
  - URINARY RETENTION [None]
  - CANDIDIASIS [None]
